FAERS Safety Report 5608826-3 (Version None)
Quarter: 2008Q1

REPORT INFORMATION
  Report Type: 
  Country: None (occurrence: None)
  Receive Date: 20080129
  Receipt Date: 20080129
  Transmission Date: 20080703
  Serious: Yes (Other)
  Sender: FDA-Public Use
  Company Number: None

PATIENT
  Age: 70 Year
  Sex: Male
  Weight: 89.8122 kg

DRUGS (2)
  1. SIMVASTATIN [Suspect]
     Indication: CARDIAC FAILURE
     Dosage: 80MG DAILY PO
     Route: 048
     Dates: start: 20060706, end: 20060721
  2. MEVACOR [Suspect]
     Indication: DYSLIPIDAEMIA
     Dosage: DAILY PO
     Route: 048
     Dates: start: 20030101

REACTIONS (2)
  - DIARRHOEA [None]
  - PHARMACEUTICAL PRODUCT COMPLAINT [None]
